FAERS Safety Report 9338960 (Version 1)
Quarter: 2013Q2

REPORT INFORMATION
  Report Type: Spontaneous
  Country: ES (occurrence: ES)
  Receive Date: 20130610
  Receipt Date: 20130610
  Transmission Date: 20140414
  Serious: Yes (Hospitalization)
  Sender: FDA-Public Use
  Company Number: PHHY2013ES056542

PATIENT
  Age: 86 Year
  Sex: Male

DRUGS (3)
  1. SINTROM [Suspect]
     Indication: ATRIAL FIBRILLATION
     Dosage: 4 MG, UNK
     Route: 048
     Dates: end: 20130424
  2. SINTROM [Suspect]
     Dosage: DOSE CHANGE
  3. DIGOXIN [Suspect]
     Indication: ATRIAL FIBRILLATION
     Dosage: 0.25 MG QD
     Route: 048
     Dates: end: 20130424

REACTIONS (1)
  - Coagulation factor XI level decreased [Recovered/Resolved]
